FAERS Safety Report 16072411 (Version 1)
Quarter: 2019Q2

REPORT INFORMATION
  Report Type: Spontaneous
  Country: US (occurrence: US)
  Receive Date: 20190314
  Receipt Date: 20190314
  Transmission Date: 20190711
  Serious: Yes (Other)
  Sender: FDA-Public Use
  Company Number: None

PATIENT
  Age: 48 Year
  Sex: Female
  Weight: 74.25 kg

DRUGS (14)
  1. LAMICTAL [Concomitant]
     Active Substance: LAMOTRIGINE
  2. VALIUM [Concomitant]
     Active Substance: DIAZEPAM
  3. LEXAPRO [Concomitant]
     Active Substance: ESCITALOPRAM OXALATE
  4. MULTIVITAMIN [Concomitant]
     Active Substance: VITAMINS
  5. DULOXETINE DELAYED-RELEASED CAPSULES USP [Suspect]
     Active Substance: DULOXETINE
     Indication: DEPRESSION
     Dosage: ?          QUANTITY:1 CAPSULE(S);?
     Route: 048
     Dates: start: 20190313, end: 20190314
  6. WELLBUTRIN [Concomitant]
     Active Substance: BUPROPION HYDROCHLORIDE
  7. GORDON [Concomitant]
  8. TOPAMAX [Concomitant]
     Active Substance: TOPIRAMATE
  9. FOLIC ACID. [Concomitant]
     Active Substance: FOLIC ACID
  10. DULOXETINE. [Concomitant]
     Active Substance: DULOXETINE
  11. ADDERALL [Concomitant]
     Active Substance: AMPHETAMINE ASPARTATE\AMPHETAMINE SULFATE\DEXTROAMPHETAMINE SACCHARATE\DEXTROAMPHETAMINE SULFATE
  12. SYNTHROID [Concomitant]
     Active Substance: LEVOTHYROXINE SODIUM
  13. DEPAKOTE [Concomitant]
     Active Substance: DIVALPROEX SODIUM
  14. OXYBUTIN [Concomitant]
     Active Substance: OXYBUTYNIN

REACTIONS (4)
  - Product substitution issue [None]
  - Paraesthesia [None]
  - Insomnia [None]
  - Headache [None]

NARRATIVE: CASE EVENT DATE: 20190313
